FAERS Safety Report 21077676 (Version 1)
Quarter: 2022Q3

REPORT INFORMATION
  Report Type: Spontaneous
  Country: US (occurrence: US)
  Receive Date: 20220713
  Receipt Date: 20220713
  Transmission Date: 20221027
  Serious: Yes (Hospitalization)
  Sender: FDA-Public Use
  Company Number: US-MALLINCKRODT-T202203574

PATIENT
  Age: 39 Year
  Sex: Female

DRUGS (6)
  1. INOMAX [Suspect]
     Active Substance: NITRIC OXIDE
     Indication: COVID-19
     Dosage: UNK, (INHALATION) RIGHT INTERNAL JUGULAR VEIN (RIJ) AND RIGHT COMMON FEMORAL VEIN
     Route: 055
  2. INOMAX [Suspect]
     Active Substance: NITRIC OXIDE
     Indication: Acute respiratory distress syndrome
  3. INOMAX [Suspect]
     Active Substance: NITRIC OXIDE
     Indication: Pulmonary hypertension
  4. INOMAX [Suspect]
     Active Substance: NITRIC OXIDE
     Indication: Right ventricular failure
  5. HEPARIN [Concomitant]
     Active Substance: HEPARIN SODIUM
     Indication: Anticoagulant therapy
     Dosage: UNK
     Route: 065
  6. BIVALIRUDIN [Concomitant]
     Active Substance: BIVALIRUDIN
     Indication: Anticoagulant therapy
     Dosage: UNK
     Route: 065

REACTIONS (11)
  - Coagulopathy [Unknown]
  - Acute kidney injury [Unknown]
  - Liver injury [Unknown]
  - Feeding intolerance [Unknown]
  - Hyperammonaemia [Unknown]
  - Mental impairment [Unknown]
  - Cor pulmonale [Recovering/Resolving]
  - Transaminases increased [Unknown]
  - Sinusitis [Unknown]
  - Product use issue [Unknown]
  - Product use in unapproved indication [Unknown]
